FAERS Safety Report 6669663-4 (Version None)
Quarter: 2010Q2

REPORT INFORMATION
  Report Type: 
  Country: None (occurrence: None)
  Receive Date: 20100406
  Receipt Date: 20061106
  Transmission Date: 20101027
  Serious: Yes (Death, Hospitalization, Disabling, Other)
  Sender: FDA-Public Use
  Company Number: US-SANOFI-AVENTIS-200621091GDDC

PATIENT
  Age: 69 Year
  Sex: Male
  Weight: 68.5 kg

DRUGS (15)
  1. AFLIBERCEPT [Suspect]
     Indication: PANCREATIC CARCINOMA STAGE IV
     Dosage: DOSE UNIT: 5 MG/KG
     Route: 042
     Dates: start: 20061016, end: 20061016
  2. AFLIBERCEPT [Suspect]
     Route: 042
  3. OXALIPLATIN [Suspect]
     Indication: PANCREATIC CARCINOMA STAGE IV
     Route: 042
     Dates: start: 20061016, end: 20061016
  4. OXALIPLATIN [Suspect]
     Route: 042
  5. LEUCOVORIN CALCIUM [Suspect]
     Indication: PANCREATIC CARCINOMA STAGE IV
     Dosage: DOSE AS USED: 382 MG CONTINUOUS INFUSION OVER 2 HOURS ON DAYS 1 AND 2
     Route: 042
     Dates: start: 20061016, end: 20061017
  6. LEUCOVORIN CALCIUM [Suspect]
     Route: 042
  7. FLUOROURACIL [Suspect]
     Indication: PANCREATIC CARCINOMA STAGE IV
     Dosage: DOSE AS USED: 764 MG BOLUS, THEN CONTINUOUS INFUSION OF 1146 MG OVER 22 HOURS ON DAYS 1 AND 2
     Route: 042
     Dates: start: 20061016, end: 20061018
  8. LISINOPRIL [Concomitant]
     Indication: HYPERTENSION
     Route: 048
     Dates: start: 20061016, end: 20061028
  9. LISINOPRIL [Concomitant]
     Route: 048
     Dates: start: 20060922, end: 20061015
  10. LISINOPRIL [Concomitant]
     Route: 048
     Dates: start: 20060913, end: 20060921
  11. OXYCODONE [Concomitant]
     Route: 048
     Dates: start: 20060815, end: 20061028
  12. PROMETHAZINE HCL [Concomitant]
     Indication: NAUSEA
     Route: 048
     Dates: start: 20060921
  13. ATIVAN [Concomitant]
     Indication: NAUSEA
     Route: 042
     Dates: start: 20061018, end: 20061018
  14. ZOFRAN [Concomitant]
     Indication: NAUSEA
     Route: 042
     Dates: start: 20061018, end: 20061018
  15. MORPHINE [Concomitant]
     Route: 042
     Dates: start: 20061020, end: 20061020

REACTIONS (8)
  - ABDOMINAL PAIN [None]
  - CONDITION AGGRAVATED [None]
  - CONFUSIONAL STATE [None]
  - DISEASE PROGRESSION [None]
  - DISORIENTATION [None]
  - PALLIATIVE CARE [None]
  - PERFORMANCE STATUS DECREASED [None]
  - REVERSIBLE POSTERIOR LEUKOENCEPHALOPATHY SYNDROME [None]
